FAERS Safety Report 8720327 (Version 2)
Quarter: 2012Q4

REPORT INFORMATION
  Report Type: 
  Country: CA (occurrence: CA)
  Receive Date: 20120813
  Receipt Date: 20120914
  Transmission Date: 20130627
  Serious: No
  Sender: FDA-Public Use
  Company Number: CA-ELI_LILLY_AND_COMPANY-CA201208002504

PATIENT
  Age: 75 Year
  Sex: Female

DRUGS (12)
  1. FORTEO [Suspect]
     Indication: OSTEOPOROSIS
     Dosage: 20 ug, qd
     Route: 058
     Dates: start: 20110606
  2. FOLIC ACID [Concomitant]
  3. METOPROLOL [Concomitant]
  4. MEFORMIN [Concomitant]
  5. SENOKOT [Concomitant]
  6. CANDESARTAN [Concomitant]
  7. METHOTREXATE [Concomitant]
  8. WARFARIN [Concomitant]
  9. SOFLAX [Concomitant]
  10. FUROSEMIDE [Concomitant]
  11. VITAMIN B12 [Concomitant]
  12. VITAMIN D [Concomitant]

REACTIONS (2)
  - Lumbar vertebral fracture [Unknown]
  - Musculoskeletal pain [Not Recovered/Not Resolved]
